FAERS Safety Report 6346739-2 (Version None)
Quarter: 2009Q3

REPORT INFORMATION
  Report Type: 
  Country: None (occurrence: None)
  Receive Date: 20090904
  Receipt Date: 20090827
  Transmission Date: 20100115
  Serious: Yes (Hospitalization)
  Sender: FDA-Public Use
  Company Number: MOZO-1000228

PATIENT
  Age: 60 Year
  Sex: Male
  Weight: 75 kg

DRUGS (4)
  1. MOZOBIL [Suspect]
     Indication: DIFFUSE LARGE B-CELL LYMPHOMA
     Dosage: 0.9 ML, UNK, SUBCUTANEOUS
     Route: 058
     Dates: start: 20090621, end: 20090623
  2. MOZOBIL [Suspect]
     Indication: HAEMATOPOIETIC STEM CELL MOBILISATION
     Dosage: 0.9 ML, UNK, SUBCUTANEOUS
     Route: 058
     Dates: start: 20090621, end: 20090623
  3. SULMETIN (MAGNESIUM GLUCONATE, METOCLOPRAMIDE HYDROCHLORIDE) [Concomitant]
  4. G-CSF (GRANULOCYTE COLONY STIMULATING FACTOR) [Concomitant]

REACTIONS (2)
  - BLOOD MAGNESIUM DECREASED [None]
  - PLATELET COUNT DECREASED [None]
